FAERS Safety Report 9707713 (Version 1)
Quarter: 2013Q4

REPORT INFORMATION
  Report Type: Spontaneous
  Country: US (occurrence: None)
  Receive Date: 20131122
  Receipt Date: 20131122
  Transmission Date: 20140711
  Serious: No
  Sender: FDA-Public Use
  Company Number: None

PATIENT
  Age: 67 Year
  Sex: Male
  Weight: 87.54 kg

DRUGS (3)
  1. ALPRAZOLAM [Suspect]
     Indication: INSOMNIA
     Dosage: 1/2 TO 1 AS NEEDED  AS NEEDED  TAKEN BY MOUTH
     Route: 048
     Dates: start: 20131102, end: 20131120
  2. ALPRAZOLAM [Suspect]
     Indication: ANXIETY
     Dosage: 1/2 TO 1 AS NEEDED  AS NEEDED  TAKEN BY MOUTH
     Route: 048
     Dates: start: 20131102, end: 20131120
  3. ALPRAZOLAM [Suspect]
     Indication: TINNITUS
     Dosage: 1/2 TO 1 AS NEEDED  AS NEEDED  TAKEN BY MOUTH
     Route: 048
     Dates: start: 20131102, end: 20131120

REACTIONS (5)
  - Insomnia [None]
  - Anxiety [None]
  - Tinnitus [None]
  - Feeling of despair [None]
  - Screaming [None]
